FAERS Safety Report 10994699 (Version 1)
Quarter: 2015Q2

REPORT INFORMATION
  Report Type: Spontaneous
  Country: JP (occurrence: JP)
  Receive Date: 20150407
  Receipt Date: 20150407
  Transmission Date: 20150821
  Serious: Yes (Other)
  Sender: FDA-Public Use
  Company Number: JP-PFIZER INC-2015066869

PATIENT
  Sex: Male

DRUGS (1)
  1. INLYTA [Suspect]
     Active Substance: AXITINIB
     Indication: RENAL CELL CARCINOMA
     Dosage: 6 MG, DAILY
     Route: 048
     Dates: start: 20150219, end: 2015

REACTIONS (3)
  - Renal impairment [Unknown]
  - Product use issue [Unknown]
  - Cardiac failure [Unknown]

NARRATIVE: CASE EVENT DATE: 2015
